FAERS Safety Report 21125532 (Version 3)
Quarter: 2022Q3

REPORT INFORMATION
  Report Type: Spontaneous
  Country: US (occurrence: US)
  Receive Date: 20220725
  Receipt Date: 20220809
  Transmission Date: 20221026
  Serious: Yes (Hospitalization, Disabling, Other)
  Sender: FDA-Public Use
  Company Number: US-PFIZER INC-PV202200028252

PATIENT
  Age: 25 Year
  Sex: Female
  Weight: 61.23 kg

DRUGS (1)
  1. PRISTIQ EXTENDED-RELEASE [Suspect]
     Active Substance: DESVENLAFAXINE SUCCINATE
     Indication: Depression
     Dosage: UNK (ONCE OR TWICE A DAY)
     Route: 048
     Dates: start: 202106, end: 20210629

REACTIONS (11)
  - Delirium [Recovered/Resolved]
  - Eye disorder [Recovered/Resolved]
  - Carotid artery disease [Recovered/Resolved]
  - Blindness [Not Recovered/Not Resolved]
  - Tardive dyskinesia [Recovered/Resolved]
  - Suicidal ideation [Recovered/Resolved]
  - Vascular pseudoaneurysm [Recovered/Resolved]
  - Psychotic disorder [Recovered/Resolved]
  - Angiogram [Not Recovered/Not Resolved]
  - Drug hypersensitivity [Recovered/Resolved]
  - Post-traumatic stress disorder [Not Recovered/Not Resolved]

NARRATIVE: CASE EVENT DATE: 20210601
